FAERS Safety Report 12100734 (Version 1)
Quarter: 2016Q1

REPORT INFORMATION
  Report Type: Spontaneous
  Country: US (occurrence: US)
  Receive Date: 20160222
  Receipt Date: 20160222
  Transmission Date: 20160526
  Serious: Yes (Death, Hospitalization)
  Sender: FDA-Public Use
  Company Number: US-HERITAGE PHARMACEUTICALS-2016HTG00045

PATIENT
  Age: 38 Year
  Sex: Male
  Weight: 91.2 kg

DRUGS (9)
  1. LORAZEPAM. [Concomitant]
     Active Substance: LORAZEPAM
  2. DULOXETINE. [Concomitant]
     Active Substance: DULOXETINE
  3. OMEPRAZOLE. [Concomitant]
     Active Substance: OMEPRAZOLE
  4. PREGABALIN. [Concomitant]
     Active Substance: PREGABALIN
  5. VERAPAMIL HYDROCHLORIDE. [Suspect]
     Active Substance: VERAPAMIL HYDROCHLORIDE
     Dosage: 80 MG, 3X/DAY
     Route: 065
  6. DIPHENHYDRAMINE. [Suspect]
     Active Substance: DIPHENHYDRAMINE
     Route: 065
  7. DICLOFENAC [Suspect]
     Active Substance: DICLOFENAC
     Route: 065
  8. TADALAFIL [Concomitant]
     Active Substance: TADALAFIL
  9. PROPRANOLOL [Concomitant]
     Active Substance: PROPRANOLOL\PROPRANOLOL HYDROCHLORIDE

REACTIONS (5)
  - Pulmonary oedema [None]
  - Intentional overdose [Fatal]
  - Completed suicide [Fatal]
  - Unresponsive to stimuli [Not Recovered/Not Resolved]
  - Toxicity to various agents [Fatal]
